FAERS Safety Report 12000972 (Version 2)
Quarter: 2016Q1

REPORT INFORMATION
  Report Type: Spontaneous
  Country: US (occurrence: US)
  Receive Date: 20160204
  Receipt Date: 20160301
  Transmission Date: 20160526
  Serious: No
  Sender: FDA-Public Use
  Company Number: US-GLAXOSMITHKLINE-US2016GSK013975

PATIENT
  Sex: Female
  Weight: 64.85 kg

DRUGS (1)
  1. LAMOTRIGINE. [Suspect]
     Active Substance: LAMOTRIGINE
     Indication: EPILEPSY
     Dosage: 250 MG, QD
     Dates: start: 2013, end: 20140213

REACTIONS (4)
  - Drug intolerance [Unknown]
  - Fatigue [Recovered/Resolved]
  - Epileptic aura [Recovered/Resolved]
  - Drug ineffective [Unknown]
